FAERS Safety Report 4570247-2 (Version None)
Quarter: 2005Q1

REPORT INFORMATION
  Report Type: 
  Country: None (occurrence: None)
  Receive Date: 20050202
  Receipt Date: 20050124
  Transmission Date: 20050727
  Serious: Yes (Hospitalization)
  Sender: FDA-Public Use
  Company Number: 2005019259

PATIENT
  Age: 32 Year
  Sex: Female

DRUGS (1)
  1. ZITHROMAX [Suspect]
     Indication: BRONCHITIS
     Dosage: ORAL
     Route: 048
     Dates: start: 20041215, end: 20041216

REACTIONS (7)
  - DYSPNOEA [None]
  - ERYTHEMA [None]
  - FACE OEDEMA [None]
  - MACROGLOSSIA [None]
  - MALAISE [None]
  - OEDEMA [None]
  - WHEEZING [None]
